FAERS Safety Report 6106654-6 (Version None)
Quarter: 2009Q1

REPORT INFORMATION
  Report Type: 
  Country: None (occurrence: None)
  Receive Date: 20090304
  Receipt Date: 20090227
  Transmission Date: 20090719
  Serious: Yes (Other)
  Sender: FDA-Public Use
  Company Number: DE-EBEWE-0244CARBOONDAN09

PATIENT
  Age: 40 Year
  Sex: Male
  Weight: 88 kg

DRUGS (4)
  1. CARBOPLATIN [Suspect]
     Indication: SEMINOMA
     Dosage: 630MG, DAILY, INTRAVENOUS
     Route: 042
     Dates: start: 20090217
  2. LAMOTRIGINE [Concomitant]
  3. ONDANSETRON [Concomitant]
  4. DEXAMETHASONE TAB [Concomitant]

REACTIONS (2)
  - CONVULSION [None]
  - DRUG INTERACTION [None]
